FAERS Safety Report 6703035-9 (Version None)
Quarter: 2010Q2

REPORT INFORMATION
  Report Type: 
  Country: None (occurrence: None)
  Receive Date: 20100427
  Receipt Date: 20100420
  Transmission Date: 20101027
  Serious: Yes (Hospitalization)
  Sender: FDA-Public Use
  Company Number: 2010SP022756

PATIENT
  Age: 59 Year
  Sex: Female

DRUGS (1)
  1. PROVENTIL [Suspect]
     Indication: DYSPNOEA
     Dosage: PO
     Route: 048

REACTIONS (1)
  - CHRONIC OBSTRUCTIVE PULMONARY DISEASE [None]
